FAERS Safety Report 9106089 (Version 1)
Quarter: 2013Q1

REPORT INFORMATION
  Report Type: Spontaneous
  Country: GB (occurrence: GB)
  Receive Date: 20130220
  Receipt Date: 20130220
  Transmission Date: 20140127
  Serious: Yes (Other)
  Sender: FDA-Public Use
  Company Number: GB-PFIZER INC-2013062356

PATIENT
  Sex: Male

DRUGS (2)
  1. SPIRONOLACTONE [Suspect]
     Dosage: 100 MG, UNK
     Route: 065
  2. LOSARTAN [Suspect]
     Dosage: 100 MG, UNK

REACTIONS (4)
  - Wrong drug administered [Recovered/Resolved]
  - Drug dispensing error [Recovered/Resolved]
  - Malaise [Unknown]
  - Renal impairment [Recovered/Resolved]
